FAERS Safety Report 8315024-1 (Version None)
Quarter: 2012Q2

REPORT INFORMATION
  Report Type: 
  Country: None (occurrence: None)
  Receive Date: 20120426
  Receipt Date: 20120418
  Transmission Date: 20120825
  Serious: Yes (Hospitalization)
  Sender: FDA-Public Use
  Company Number: US-ABBOTT-12P-163-0927399-00

PATIENT
  Sex: Female
  Weight: 99.88 kg

DRUGS (2)
  1. PREDNISONE TAB [Concomitant]
     Indication: PRODUCT USED FOR UNKNOWN INDICATION
  2. HUMIRA [Suspect]
     Indication: RHEUMATOID ARTHRITIS
     Dates: start: 20111101

REACTIONS (9)
  - ASTHENIA [None]
  - FATIGUE [None]
  - BACK PAIN [None]
  - PNEUMONIA [None]
  - PYREXIA [None]
  - MUSCULOSKELETAL PAIN [None]
  - INJECTION SITE PAIN [None]
  - ARTHRALGIA [None]
  - SPINAL FRACTURE [None]
